FAERS Safety Report 8500186-3 (Version None)
Quarter: 2012Q3

REPORT INFORMATION
  Report Type: 
  Country: None (occurrence: None)
  Receive Date: 20120710
  Receipt Date: 20120704
  Transmission Date: 20120928
  Serious: Yes (Life-Threatening, Other)
  Sender: FDA-Public Use
  Company Number: IT-PFIZER INC-2012139432

PATIENT
  Age: 40 Year
  Sex: Male

DRUGS (9)
  1. RAMIPRIL [Concomitant]
     Dosage: 5 MG
     Route: 048
  2. LYRICA [Suspect]
     Indication: DIABETIC NEUROPATHY
     Dosage: 300 MG, 2X/DAY
     Route: 048
  3. VALIUM [Suspect]
     Indication: SUICIDE ATTEMPT
     Dosage: 20 ML, TOTAL
     Route: 048
     Dates: start: 20120523, end: 20120523
  4. LYRICA [Suspect]
     Dosage: 14 IU TOTAL
     Route: 048
     Dates: start: 20120523, end: 20120523
  5. TRAMADOL HCL [Suspect]
     Indication: SUICIDE ATTEMPT
     Dosage: 30 ML
     Route: 048
     Dates: start: 20120523, end: 20120523
  6. HUMALOG [Suspect]
     Indication: SUICIDE ATTEMPT
     Dosage: 3 MG, TOTAL
     Route: 058
     Dates: start: 20120523, end: 20120523
  7. APIDRA [Suspect]
     Indication: SUICIDE ATTEMPT
     Dosage: 3 ML, TOTAL
     Route: 048
     Dates: start: 20120523, end: 20120523
  8. DULOXETINE HYDROCHLORIDE [Suspect]
     Indication: SUICIDE ATTEMPT
     Dosage: 56 IU, TOTAL
     Route: 048
     Dates: start: 20120523, end: 20120523
  9. VALPROATE SODIUM [Suspect]
     Indication: SUICIDE ATTEMPT
     Dosage: 60 IU, TOTAL
     Route: 048
     Dates: start: 20120523, end: 20120523

REACTIONS (6)
  - HYPOTENSION [None]
  - SUICIDE ATTEMPT [None]
  - BRADYKINESIA [None]
  - BRADYPHRENIA [None]
  - HYPOGLYCAEMIA [None]
  - SOMNOLENCE [None]
